FAERS Safety Report 5678921-1 (Version None)
Quarter: 2008Q1

REPORT INFORMATION
  Report Type: 
  Country: None (occurrence: None)
  Receive Date: 20080324
  Receipt Date: 20080324
  Transmission Date: 20080703
  Serious: No
  Sender: FDA-Public Use
  Company Number: None

PATIENT

DRUGS (2)
  1. FOSINOPRIL SODIUM AND HYDROCHLOROTHIAZIDE [Suspect]
     Dosage: TABLET
  2. MONOPRIL [Suspect]
     Dosage: TABLET

REACTIONS (3)
  - DRUG DISPENSING ERROR [None]
  - HYPOTENSION [None]
  - MEDICATION ERROR [None]
